FAERS Safety Report 6477981-8 (Version None)
Quarter: 2009Q4

REPORT INFORMATION
  Report Type: 
  Country: None (occurrence: None)
  Receive Date: 20091207
  Receipt Date: 20091127
  Transmission Date: 20100525
  Serious: Yes (Hospitalization)
  Sender: FDA-Public Use
  Company Number: B0602546A

PATIENT
  Sex: Female
  Weight: 41 kg

DRUGS (14)
  1. TYKERB [Suspect]
     Indication: BREAST CANCER
     Route: 048
     Dates: start: 20091008
  2. PACLITAXEL [Suspect]
     Indication: BREAST CANCER
     Dosage: 64MGM2 WEEKLY
     Route: 042
     Dates: start: 20091008
  3. LOXOPROFEN SODIUM [Concomitant]
     Indication: PAIN
     Route: 065
     Dates: start: 20090522
  4. REBAMIPIDE [Concomitant]
     Indication: GASTRITIS PROPHYLAXIS
     Route: 048
     Dates: start: 20090522
  5. GRANISETRON HYDROCHLORIDE [Concomitant]
     Indication: PREMEDICATION
     Route: 065
     Dates: start: 20090604
  6. DEXAMETHASONE SODIUM PHOSPHATE [Concomitant]
     Indication: PREMEDICATION
     Route: 065
     Dates: start: 20090604
  7. RANITIDINE HYDROCHLORIDE [Concomitant]
     Indication: PREMEDICATION
     Route: 065
     Dates: start: 20090604
  8. DIPHENHYDRAMINE HYDROCHLORIDE [Concomitant]
     Indication: PREMEDICATION
     Route: 065
     Dates: start: 20090604
  9. ZOLEDRONIC ACID [Concomitant]
     Indication: METASTASES TO BONE
     Route: 065
     Dates: start: 20090604
  10. BETAMETHASONE VALERATE [Concomitant]
     Indication: RASH
     Route: 061
     Dates: start: 20090702
  11. UNKNOWN DRUG [Concomitant]
     Indication: RASH
     Route: 065
     Dates: start: 20090716
  12. UNKNOWN DRUG [Concomitant]
     Route: 065
     Dates: start: 20090716
  13. L-CYSTEINE [Concomitant]
     Indication: RASH
     Route: 048
     Dates: start: 20090716
  14. HYDROCORTISONE [Concomitant]
     Indication: HAEMORRHOIDS
     Route: 048
     Dates: start: 20090813

REACTIONS (10)
  - BLOOD CALCIUM DECREASED [None]
  - BLOOD CHLORIDE DECREASED [None]
  - BLOOD POTASSIUM DECREASED [None]
  - BLOOD SODIUM DECREASED [None]
  - CHOLANGITIS [None]
  - DECREASED APPETITE [None]
  - FATIGUE [None]
  - HAEMATOCRIT DECREASED [None]
  - HAEMOGLOBIN DECREASED [None]
  - LIVER ABSCESS [None]
